FAERS Safety Report 6067405-7 (Version None)
Quarter: 2009Q1

REPORT INFORMATION
  Report Type: 
  Country: None (occurrence: None)
  Receive Date: 20090205
  Receipt Date: 20090126
  Transmission Date: 20090719
  Serious: Yes (Other)
  Sender: FDA-Public Use
  Company Number: AU-PFIZER INC-2009160986

PATIENT

DRUGS (1)
  1. CHAMPIX [Suspect]
     Dosage: 0.5 MG, UNK
     Dates: start: 20090118, end: 20090126

REACTIONS (2)
  - ABDOMINAL PAIN [None]
  - BLOOD URINE PRESENT [None]
